FAERS Safety Report 4783360-1 (Version None)
Quarter: 2005Q3

REPORT INFORMATION
  Report Type: 
  Country: None (occurrence: None)
  Receive Date: 20050929
  Receipt Date: 20050916
  Transmission Date: 20060218
  Serious: Yes (Other)
  Sender: FDA-Public Use
  Company Number: US-GLAXOSMITHKLINE-A0574627A

PATIENT
  Age: 75 Year
  Sex: Female
  Weight: 59 kg

DRUGS (3)
  1. AQUAFRESH WHITENING TARTAR PROTECTION TOOTHPASTE [Suspect]
     Indication: DENTAL CLEANING
     Dates: start: 20050828
  2. NORVASC [Concomitant]
  3. ASPIRIN [Concomitant]

REACTIONS (5)
  - ANAPHYLACTIC REACTION [None]
  - ARTHROPOD STING [None]
  - DYSPHONIA [None]
  - THROAT TIGHTNESS [None]
  - TONGUE DISORDER [None]
